FAERS Safety Report 23972625 (Version 1)
Quarter: 2024Q2

REPORT INFORMATION
  Report Type: Report from Study
  Country: AU (occurrence: AU)
  Receive Date: 20240613
  Receipt Date: 20240613
  Transmission Date: 20240716
  Serious: Yes (Hospitalization, Other)
  Sender: FDA-Public Use
  Company Number: AU-Vifor Pharma-VIT-2024-04727

PATIENT
  Age: 50 Year
  Sex: Male
  Weight: 71 kg

DRUGS (19)
  1. KORSUVA [Suspect]
     Active Substance: DIFELIKEFALIN ACETATE
     Indication: Product used for unknown indication
     Dosage: IV 3X WEEK AT THE END OF HAEMODIALYSIS SESSIONS. SUBSEQUENT ADMINISTRATION ON 18-MAY-2024. (35 MCG,
     Route: 040
     Dates: start: 20240507, end: 20240518
  2. KORSUVA [Suspect]
     Active Substance: DIFELIKEFALIN ACETATE
     Indication: Pruritus
  3. KORSUVA [Suspect]
     Active Substance: DIFELIKEFALIN ACETATE
     Indication: Uraemic pruritus
  4. LANTHANUM [Concomitant]
     Active Substance: LANTHANUM
     Indication: Chronic kidney disease-mineral and bone disorder
     Dosage: TDS (1 GM, 3 IN 1 D)
  5. CINACALCET [Concomitant]
     Active Substance: CINACALCET
     Indication: Chronic kidney disease-mineral and bone disorder
     Dosage: NOCTE (AT NIGHT) (30 MG)
  6. ATORVASTATIN [Concomitant]
     Active Substance: ATORVASTATIN
     Indication: Hypercholesterolaemia
     Dosage: NOCTE (AT NIGHT) (80 MG)
  7. PRAMIPEXOLE [Concomitant]
     Active Substance: PRAMIPEXOLE\PRAMIPEXOLE DIHYDROCHLORIDE
     Indication: Restless legs syndrome
     Dosage: NOCTE (AT NIGHT) (750 MCG)
  8. PREGABALIN [Concomitant]
     Active Substance: PREGABALIN
     Indication: Pain
     Dosage: BD (25 MG, 2 IN 1 D)
  9. PREGABALIN [Concomitant]
     Active Substance: PREGABALIN
     Indication: Restless legs syndrome
  10. ASPIRIN [Concomitant]
     Active Substance: ASPIRIN
     Indication: Prophylaxis
     Dosage: MANE (IN THE MORNING)
  11. DOCUSATE SODIUM\SENNOSIDES A AND B [Concomitant]
     Active Substance: DOCUSATE SODIUM\SENNOSIDES A AND B
     Indication: Constipation
     Dosage: 4 DOSAGE FORMS (2 DOSAGE FORMS, 2 IN 1 D)
  12. MELATONIN [Concomitant]
     Active Substance: MELATONIN
     Indication: Sleep disorder
     Dosage: CR 2 MG NOCTE (AT NIGHT) (2 MG)
  13. DEXAMETHASONE [Concomitant]
     Active Substance: DEXAMETHASONE
     Indication: Chemotherapy
  14. POMALIDOMIDE [Concomitant]
     Active Substance: POMALIDOMIDE
     Dosage: DAILY (3 WEEKS ON, 1 WEEK OFF)
     Route: 048
  15. PANTOPRAZOLE [Concomitant]
     Active Substance: PANTOPRAZOLE
     Dosage: 40 MG
     Route: 048
  16. VALACYCLOVIR HYDROCHLORIDE [Concomitant]
     Active Substance: VALACYCLOVIR HYDROCHLORIDE
     Indication: Guillain-Barre syndrome
     Dosage: 500 MG
  17. MOMETASONE [Concomitant]
     Active Substance: MOMETASONE
     Indication: Eczema
     Dosage: PRN; AS REQUIRED
  18. ACETAMINOPHEN [Concomitant]
     Active Substance: ACETAMINOPHEN
     Indication: Analgesic therapy
     Dosage: PRN; AS REQUIRED
  19. HUMAN IMMUNOGLOBULIN G [Concomitant]
     Active Substance: HUMAN IMMUNOGLOBULIN G
     Indication: Guillain-Barre syndrome
     Dosage: 70 GM, 1 IN 1 M
     Route: 042

REACTIONS (9)
  - Hypotension [Recovered/Resolved]
  - Hypotension [Recovered/Resolved]
  - Hypotension [Recovered/Resolved]
  - Paraesthesia [Recovered/Resolved]
  - Dizziness [Recovered/Resolved]
  - Somnolence [Recovered/Resolved]
  - Dizziness [Recovered/Resolved]
  - Somnolence [Recovered/Resolved]
  - Dizziness [Recovered/Resolved]

NARRATIVE: CASE EVENT DATE: 20240501
